FAERS Safety Report 7643710-5 (Version None)
Quarter: 2011Q3

REPORT INFORMATION
  Report Type: 
  Country: None (occurrence: None)
  Receive Date: 20110729
  Receipt Date: 20110722
  Transmission Date: 20111222
  Serious: Yes (Life-Threatening, Hospitalization, Disabling, Other)
  Sender: FDA-Public Use
  Company Number: BR-BAYER-200814377LA

PATIENT
  Age: 26 Year
  Sex: Female

DRUGS (8)
  1. BETASERON [Suspect]
     Route: 058
     Dates: start: 20100101
  2. PHENYTOIN [Concomitant]
     Indication: CONVULSION
     Route: 048
     Dates: start: 20090701, end: 20090801
  3. BETASERON [Suspect]
     Route: 058
     Dates: end: 20100101
  4. TEGRETOL [Concomitant]
     Indication: MUSCLE SPASMS
     Route: 048
     Dates: start: 20090501, end: 20090801
  5. OMEPRAZOLE [Concomitant]
     Indication: GASTRITIS
     Dosage: AS USED DOSE: UNK
     Route: 048
     Dates: start: 20070101
  6. BETASERON [Suspect]
     Dosage: 9.6 MIU, QOD
  7. BETASERON [Suspect]
     Indication: SECONDARY PROGRESSIVE MULTIPLE SCLEROSIS
     Route: 058
     Dates: start: 20060101, end: 20080520
  8. BETASERON [Suspect]
     Route: 058
     Dates: start: 20080501

REACTIONS (30)
  - INJECTION SITE PAIN [None]
  - SYNCOPE [None]
  - CONVULSION [None]
  - IMPAIRED HEALING [None]
  - RETCHING [None]
  - HYPOTENSION [None]
  - INJECTION SITE RASH [None]
  - BLISTER [None]
  - INFLUENZA LIKE ILLNESS [None]
  - CHILLS [None]
  - NERVOUSNESS [None]
  - MUSCULAR WEAKNESS [None]
  - HYPOAESTHESIA [None]
  - WEIGHT DECREASED [None]
  - MULTIPLE SCLEROSIS [None]
  - COORDINATION ABNORMAL [None]
  - QUADRIPLEGIA [None]
  - LIMB INJURY [None]
  - SUICIDE ATTEMPT [None]
  - ANAEMIA [None]
  - MONOPLEGIA [None]
  - INJECTION SITE HAEMATOMA [None]
  - DECREASED APPETITE [None]
  - MOVEMENT DISORDER [None]
  - SOMNOLENCE [None]
  - HEMIPLEGIA [None]
  - PAIN IN EXTREMITY [None]
  - DEPRESSION [None]
  - SPEECH DISORDER [None]
  - FALL [None]
